FAERS Safety Report 24248308 (Version 2)
Quarter: 2025Q3

REPORT INFORMATION
  Report Type: Report from Study
  Country: KR (occurrence: KR)
  Receive Date: 20240826
  Receipt Date: 20250724
  Transmission Date: 20251021
  Serious: Yes (Other)
  Sender: TAKEDA
  Company Number: KR-TAKEDA-2024TUS084599

PATIENT
  Age: 65 Year
  Sex: Male
  Weight: 65 kg

DRUGS (31)
  1. VEDOLIZUMAB [Suspect]
     Active Substance: VEDOLIZUMAB
     Indication: Colitis ulcerative
  2. MESALAMINE [Concomitant]
     Active Substance: MESALAMINE
     Dosage: 4800 MILLIGRAM, QD
     Dates: start: 20231129
  3. AZATHIOPRINE [Concomitant]
     Active Substance: AZATHIOPRINE
     Dosage: 50 MILLIGRAM, QD
     Dates: start: 20231211, end: 20231225
  4. AZATHIOPRINE [Concomitant]
     Active Substance: AZATHIOPRINE
     Dosage: 75 MILLIGRAM, QD
     Dates: start: 20231226, end: 20240115
  5. AZATHIOPRINE [Concomitant]
     Active Substance: AZATHIOPRINE
     Dosage: 100 MILLIGRAM, QD
     Dates: start: 20240116, end: 20240205
  6. AZATHIOPRINE [Concomitant]
     Active Substance: AZATHIOPRINE
     Dosage: 125 MILLIGRAM, QD
     Dates: start: 20240206, end: 20240304
  7. AZATHIOPRINE [Concomitant]
     Active Substance: AZATHIOPRINE
     Dosage: 150 MILLIGRAM, QD
     Dates: start: 20240305, end: 20240513
  8. AZATHIOPRINE [Concomitant]
     Active Substance: AZATHIOPRINE
     Dosage: 100 MILLIGRAM, QD
     Dates: start: 20240514
  9. PENTASA [Concomitant]
     Active Substance: MESALAMINE
     Dosage: 1000 MILLIGRAM, QD
     Dates: start: 20240305
  10. Solondo [Concomitant]
     Dosage: 25 MILLIGRAM, BID
     Dates: start: 20231204, end: 20231210
  11. Solondo [Concomitant]
     Dosage: 20 MILLIGRAM, BID
     Dates: start: 20231211, end: 20231217
  12. Solondo [Concomitant]
     Dosage: 15 MILLIGRAM, BID
     Dates: start: 20231218, end: 20231225
  13. Solondo [Concomitant]
     Dosage: 10 MILLIGRAM, BID
     Dates: start: 20231226, end: 20240101
  14. Solondo [Concomitant]
     Dosage: 5 MILLIGRAM, BID
     Dates: start: 20240102, end: 20240108
  15. Solondo [Concomitant]
     Dosage: 5 MILLIGRAM, QD
     Dates: start: 20240109, end: 20240115
  16. Solondo [Concomitant]
     Dosage: 25 MILLIGRAM, BID
     Dates: start: 20240423, end: 20240429
  17. Solondo [Concomitant]
     Dosage: 20 MILLIGRAM, BID
     Dates: start: 20240430, end: 20240506
  18. Solondo [Concomitant]
     Dosage: 15 MILLIGRAM, BID
     Dates: start: 20240507, end: 20240513
  19. Solondo [Concomitant]
     Dosage: 10 MILLIGRAM, BID
     Dates: start: 20240514, end: 20240520
  20. Solondo [Concomitant]
     Dosage: 5 MILLIGRAM, BID
     Dates: start: 20240521, end: 20240527
  21. Solondo [Concomitant]
     Dosage: 5 MILLIGRAM, QD
     Dates: start: 20240528, end: 20240603
  22. HARNAL [Concomitant]
     Active Substance: TAMSULOSIN HYDROCHLORIDE
     Indication: Benign prostatic hyperplasia
     Dosage: 0.2 MILLIGRAM, QD
  23. Newpex [Concomitant]
     Indication: Dyslipidaemia
     Dosage: 10 MILLIGRAM, QD
     Dates: end: 20231129
  24. Newpex [Concomitant]
     Dosage: 10 MILLIGRAM, QD
     Dates: start: 20231204
  25. CALCIUM CARBONATE\CHOLECALCIFEROL [Concomitant]
     Active Substance: CALCIUM CARBONATE\CHOLECALCIFEROL
     Indication: Vitamin D deficiency
     Dosage: UNK UNK, QD
     Dates: start: 20231130
  26. Medilac ds [Concomitant]
     Indication: General symptom
     Dosage: UNK UNK, QD
     Dates: start: 20221202
  27. Medilac ds [Concomitant]
     Indication: Dyspepsia
  28. Ezet [Concomitant]
     Indication: Dyslipidaemia
     Dosage: 10 MILLIGRAM, QD
     Dates: start: 20240611
  29. Rabekhan [Concomitant]
     Indication: Peptic ulcer
     Dosage: 10 MILLIGRAM, BID
     Dates: start: 20231204, end: 20240513
  30. Vancozin [Concomitant]
     Indication: Clostridium difficile infection
     Dosage: UNK UNK, BID
     Dates: start: 20240805, end: 20240814
  31. XANAX [Concomitant]
     Active Substance: ALPRAZOLAM
     Indication: Anxiety
     Dosage: 0.25 MILLIGRAM, TID
     Dates: start: 20250120, end: 20250218

REACTIONS (1)
  - Clostridium difficile infection [Recovering/Resolving]

NARRATIVE: CASE EVENT DATE: 20240729
